FAERS Safety Report 8540644-9 (Version None)
Quarter: 2012Q3

REPORT INFORMATION
  Report Type: 
  Country: None (occurrence: None)
  Receive Date: 20120726
  Receipt Date: 20120716
  Transmission Date: 20120928
  Serious: Yes (Hospitalization)
  Sender: FDA-Public Use
  Company Number: LB-BRISTOL-MYERS SQUIBB COMPANY-16778227

PATIENT
  Age: 74 Year
  Sex: Female

DRUGS (10)
  1. PLAVIX [Suspect]
     Indication: CORONARY ARTERY DISEASE
     Route: 048
     Dates: start: 20000101
  2. VASTAREL [Concomitant]
     Dosage: 1 TABLET
     Route: 048
  3. POTASSIUM CHLORIDE [Concomitant]
     Dosage: 1 TAB DAILY
     Route: 048
  4. FLUTICASONE PROPIONATE/SALMETEROL [Concomitant]
     Route: 055
  5. DILTIAZEM [Suspect]
     Indication: HYPERTENSION
     Route: 048
     Dates: start: 20000101
  6. SIMVASTATIN [Concomitant]
     Route: 048
  7. IRBESARTAN AND HYDROCHLOROTHIAZIDE [Suspect]
     Indication: HYPERTENSION
     Dosage: 1 DF: 300/12.5 MG
     Route: 048
     Dates: start: 20000101
  8. DEANXIT [Concomitant]
     Dosage: 1 DF = 1 TAB MORNING
     Route: 048
  9. METFORMIN HCL [Concomitant]
     Dosage: 0.5 TAB MORNING 1 TAB EVENING
     Route: 048
  10. CALCIUM [Concomitant]
     Dosage: 1 TAB DAILY
     Route: 048

REACTIONS (1)
  - ANORECTAL DISORDER [None]
